FAERS Safety Report 9337689 (Version 2)
Quarter: 2013Q4

REPORT INFORMATION
  Report Type: Spontaneous
  Country: US (occurrence: US)
  Receive Date: 20130607
  Receipt Date: 20131028
  Transmission Date: 20140711
  Serious: Yes (Death, Hospitalization)
  Sender: FDA-Public Use
  Company Number: US-B.I. PHARMACEUTICALS,INC./RIDGEFIELD-2013-BI-15784BP

PATIENT
  Age: 89 Year
  Sex: Female
  Weight: 68.04 kg

DRUGS (4)
  1. PRADAXA [Suspect]
     Indication: DEEP VEIN THROMBOSIS
     Dosage: 150 MG
     Route: 048
     Dates: start: 20111029, end: 201202
  2. HYDROCODONE [Concomitant]
  3. AMMENS [Concomitant]
  4. NITROGLYCERIN [Concomitant]

REACTIONS (3)
  - Gastrointestinal haemorrhage [Fatal]
  - Multi-organ failure [Fatal]
  - Haemorrhagic anaemia [Unknown]
